FAERS Safety Report 17074870 (Version 1)
Quarter: 2019Q4

REPORT INFORMATION
  Report Type: Spontaneous
  Country: US (occurrence: US)
  Receive Date: 20191028
  Receipt Date: 20191028
  Transmission Date: 20200122
  Serious: Yes (Death)
  Sender: FDA-Public Use
  Company Number: None

PATIENT
  Age: 72 Year

DRUGS (6)
  1. AMBRISENTAN 10MG [Suspect]
     Active Substance: AMBRISENTAN
     Indication: PULMONARY ARTERIAL HYPERTENSION
     Route: 048
     Dates: start: 20190929, end: 20191024
  2. TADALAFIL. [Concomitant]
     Active Substance: TADALAFIL
  3. CEPHALEXIN. [Concomitant]
     Active Substance: CEPHALEXIN
  4. CARISOPRODOL. [Concomitant]
     Active Substance: CARISOPRODOL
  5. LEVOTHYROXINE. [Concomitant]
     Active Substance: LEVOTHYROXINE
  6. TORSEMIDE. [Concomitant]
     Active Substance: TORSEMIDE

REACTIONS (2)
  - Oedema [None]
  - Pulmonary arterial hypertension [None]

NARRATIVE: CASE EVENT DATE: 20191024
